FAERS Safety Report 7895477-3 (Version None)
Quarter: 2011Q4

REPORT INFORMATION
  Report Type: 
  Country: None (occurrence: None)
  Receive Date: 20111106
  Receipt Date: 20110829
  Transmission Date: 20120403
  Serious: No
  Sender: FDA-Public Use
  Company Number: US-AMGEN-USASP2011028199

PATIENT
  Age: 23 Year
  Sex: Female

DRUGS (2)
  1. ENBREL [Suspect]
     Indication: RHEUMATOID ARTHRITIS
     Dosage: 25 MG, QWK
     Route: 058
     Dates: start: 20110527
  2. ENBREL [Suspect]
     Indication: ASPERGER'S DISORDER

REACTIONS (24)
  - MUSCULAR WEAKNESS [None]
  - PARAESTHESIA [None]
  - FATIGUE [None]
  - INFLUENZA LIKE ILLNESS [None]
  - CHILLS [None]
  - DRUG INEFFECTIVE [None]
  - NAUSEA [None]
  - NIGHTMARE [None]
  - PRODUCTIVE COUGH [None]
  - INJECTION SITE PAIN [None]
  - DIARRHOEA [None]
  - BALANCE DISORDER [None]
  - DYSPNOEA [None]
  - PAIN [None]
  - INJECTION SITE ERYTHEMA [None]
  - SLEEP DISORDER [None]
  - DIZZINESS [None]
  - ABDOMINAL PAIN UPPER [None]
  - INJECTION SITE PRURITUS [None]
  - HEADACHE [None]
  - RHEUMATOID ARTHRITIS [None]
  - GAIT DISTURBANCE [None]
  - HYPOAESTHESIA [None]
  - OROPHARYNGEAL PAIN [None]
